FAERS Safety Report 19772461 (Version 1)
Quarter: 2021Q3

REPORT INFORMATION
  Report Type: Spontaneous
  Country: US (occurrence: US)
  Receive Date: 20210828
  Receipt Date: 20210828
  Transmission Date: 20211014
  Serious: Yes (Hospitalization)
  Sender: FDA-Public Use
  Company Number: None

PATIENT
  Age: 77 Year
  Sex: Male
  Weight: 92.5 kg

DRUGS (3)
  1. TAXOL [Suspect]
     Active Substance: PACLITAXEL
     Dates: end: 20210305
  2. DURVALUMAB (MEDI4736) [Suspect]
     Active Substance: DURVALUMAB
     Dates: end: 20210426
  3. CARBOPLATIN. [Suspect]
     Active Substance: CARBOPLATIN
     Dates: end: 20210305

REACTIONS (7)
  - Chest pain [None]
  - Haemoglobin decreased [None]
  - Lung opacity [None]
  - Blood magnesium decreased [None]
  - Sputum discoloured [None]
  - Cough [None]
  - Haematocrit decreased [None]

NARRATIVE: CASE EVENT DATE: 20210808
